FAERS Safety Report 20764334 (Version 1)
Quarter: 2022Q2

REPORT INFORMATION
  Report Type: Report from Study
  Country: US (occurrence: US)
  Receive Date: 20220428
  Receipt Date: 20220428
  Transmission Date: 20220721
  Serious: Yes (Hospitalization)
  Sender: FDA-Public Use
  Company Number: US-TAKEDA-US201702761

PATIENT
  Age: 15 Year
  Sex: Male

DRUGS (2)
  1. IDURSULFASE [Suspect]
     Active Substance: IDURSULFASE
     Indication: Mucopolysaccharidosis II
     Dosage: 0.57 MILLIGRAM/KILOGRAM, 1/WEEK
     Route: 041
     Dates: start: 20061031
  2. IDURSULFASE [Suspect]
     Active Substance: IDURSULFASE
     Dosage: 0.83 MILLIGRAM/KILOGRAM, 1/WEEK
     Route: 042
     Dates: start: 20100324

REACTIONS (1)
  - Salivary hypersecretion [Recovered/Resolved]

NARRATIVE: CASE EVENT DATE: 20161104
